FAERS Safety Report 18821370 (Version 2)
Quarter: 2021Q1

REPORT INFORMATION
  Report Type: Report from Study
  Country: DE (occurrence: DE)
  Receive Date: 20210202
  Receipt Date: 20210203
  Transmission Date: 20210419
  Serious: Yes (Other)
  Sender: FDA-Public Use
  Company Number: DE-ASTRAZENECA-2021A015361

PATIENT
  Age: 68 Year
  Sex: Female
  Weight: 92 kg

DRUGS (3)
  1. VIANI [Concomitant]
     Active Substance: FLUTICASONE PROPIONATE\SALMETEROL XINAFOATE
     Indication: ASTHMA
     Dosage: 100 MG BID
     Route: 048
     Dates: start: 20180417
  2. FASENRA [Suspect]
     Active Substance: BENRALIZUMAB
     Indication: ASTHMA
     Route: 058
  3. SPIRIVA [Concomitant]
     Active Substance: TIOTROPIUM BROMIDE MONOHYDRATE
     Indication: ASTHMA
     Dosage: 2.5 MG
     Route: 048
     Dates: start: 20081203

REACTIONS (3)
  - Pain [Recovering/Resolving]
  - Myalgia [Recovering/Resolving]
  - Pruritus [Recovering/Resolving]

NARRATIVE: CASE EVENT DATE: 20200929
